FAERS Safety Report 4719628-4 (Version None)
Quarter: 2005Q3

REPORT INFORMATION
  Report Type: 
  Country: None (occurrence: None)
  Receive Date: 20050721
  Receipt Date: 20040413
  Transmission Date: 20060218
  Serious: No
  Sender: FDA-Public Use
  Company Number: US-GLAXOSMITHKLINE-A0508244A

PATIENT
  Sex: Male

DRUGS (21)
  1. AVANDIA [Suspect]
     Dosage: 8MG PER DAY
     Route: 048
  2. GLUCOTROL [Concomitant]
     Indication: DRUG USE FOR UNKNOWN INDICATION
     Dosage: 10MG IN THE MORNING
     Route: 048
  3. AVAPRO [Concomitant]
     Indication: DRUG USE FOR UNKNOWN INDICATION
     Dosage: 300MG PER DAY
  4. ZOCOR [Concomitant]
     Indication: DRUG USE FOR UNKNOWN INDICATION
     Dosage: 80MG AT NIGHT
     Route: 048
  5. XENICAL [Concomitant]
     Indication: DRUG USE FOR UNKNOWN INDICATION
     Dosage: 120MG THREE TIMES PER DAY
  6. LORTAB [Concomitant]
     Indication: DRUG USE FOR UNKNOWN INDICATION
     Dosage: 7.5MG AS REQUIRED
     Route: 048
  7. PLAVIX [Concomitant]
     Indication: DRUG USE FOR UNKNOWN INDICATION
     Dosage: 75MG PER DAY
     Route: 048
  8. ASPIRIN [Concomitant]
     Indication: DRUG USE FOR UNKNOWN INDICATION
     Dosage: 81MG PER DAY
     Route: 048
  9. LACTULOSE [Concomitant]
     Indication: DRUG USE FOR UNKNOWN INDICATION
     Dosage: 20G PER DAY
  10. GLUCOPHAGE [Concomitant]
     Indication: DRUG USE FOR UNKNOWN INDICATION
     Dosage: 850MG THREE TIMES PER DAY
     Route: 048
  11. CELEBREX [Concomitant]
     Indication: DRUG USE FOR UNKNOWN INDICATION
     Dosage: 200MG TWICE PER DAY
  12. IMDUR [Concomitant]
  13. FLEXERIL [Concomitant]
  14. NORVASC [Concomitant]
  15. TOPROL-XL [Concomitant]
  16. XANAX [Concomitant]
  17. NEURONTIN [Concomitant]
  18. LESCOL [Concomitant]
  19. NITROGLYCERIN [Concomitant]
     Route: 060
  20. PROTONIX [Concomitant]
     Indication: DRUG USE FOR UNKNOWN INDICATION
  21. CIMETIDINE [Concomitant]
     Indication: DRUG USE FOR UNKNOWN INDICATION
     Dosage: 400MG TWICE PER DAY
     Route: 048

REACTIONS (1)
  - ADVERSE EVENT [None]
